FAERS Safety Report 23842798 (Version 1)
Quarter: 2024Q2

REPORT INFORMATION
  Report Type: Spontaneous
  Country: US (occurrence: None)
  Receive Date: 20240509
  Receipt Date: 20240509
  Transmission Date: 20240716
  Serious: Yes (Disabling, Other)
  Sender: FDA-Public Use
  Company Number: None

PATIENT
  Age: 68 Year
  Sex: Female
  Weight: 60.78 kg

DRUGS (20)
  1. ZIPRASIDONE HYDROCHLORIDE [Suspect]
     Active Substance: ZIPRASIDONE HYDROCHLORIDE
     Indication: Bipolar disorder
     Dosage: OTHER QUANTITY : 1;?OTHER FREQUENCY : MORNING ;?
     Route: 048
     Dates: start: 20240404, end: 20240410
  2. SERTRALINE [Concomitant]
     Active Substance: SERTRALINE HYDROCHLORIDE
  3. DIVALPROEX SODIUM [Concomitant]
     Active Substance: DIVALPROEX SODIUM
  4. DULOXETINE HYDROCHLORIDE [Concomitant]
     Active Substance: DULOXETINE HYDROCHLORIDE
  5. CLONAZEPAM [Concomitant]
  6. DICYCLOMINE HCL [Concomitant]
  7. Lasartan Potassium [Concomitant]
  8. ROSUVASTATIN CALCIUM [Concomitant]
  9. Oxybutynincl [Concomitant]
  10. PRAMIPEXOLE [Concomitant]
  11. Pantopraole Sodium [Concomitant]
  12. Acetaminlaphen [Concomitant]
  13. RISEDRONATE [Concomitant]
  14. BREZTRI [Concomitant]
     Active Substance: BUDESONIDE\FORMOTEROL\GLYCOPYRROLATE
  15. Cambivent Respimat [Concomitant]
  16. Adult low dose Apsirin [Concomitant]
  17. ACIDOPHILUS [Concomitant]
     Active Substance: LACTOBACILLUS ACIDOPHILUS
  18. Calcium 600 + D3 [Concomitant]
  19. FOLIC ACID [Concomitant]
  20. Ferrous Gluconate Iron Supplement [Concomitant]

REACTIONS (3)
  - Anger [None]
  - Sleep attacks [None]
  - Mania [None]

NARRATIVE: CASE EVENT DATE: 20240404
